FAERS Safety Report 9861771 (Version 3)
Quarter: 2014Q1

REPORT INFORMATION
  Report Type: Report from Study
  Country: CA (occurrence: CA)
  Receive Date: 20140203
  Receipt Date: 20140214
  Transmission Date: 20141002
  Serious: No
  Sender: FDA-Public Use
  Company Number: CA-ROCHE-1308781

PATIENT
  Sex: Female

DRUGS (12)
  1. KADCYLA [Suspect]
     Indication: BREAST CANCER METASTATIC
     Dosage: 3.6 MG/KG
     Route: 042
     Dates: start: 20131104
  2. HERCEPTIN [Suspect]
     Indication: PRODUCT USED FOR UNKNOWN INDICATION
     Route: 065
     Dates: start: 2008
  3. XELODA [Suspect]
     Indication: PRODUCT USED FOR UNKNOWN INDICATION
     Route: 065
     Dates: start: 201209, end: 201307
  4. VINORELBINE [Suspect]
     Indication: PRODUCT USED FOR UNKNOWN INDICATION
     Route: 065
     Dates: start: 201308, end: 201310
  5. DEXAMETHASONE [Suspect]
     Indication: PRODUCT USED FOR UNKNOWN INDICATION
     Route: 065
     Dates: end: 201310
  6. TAXOTERE [Suspect]
     Indication: PRODUCT USED FOR UNKNOWN INDICATION
     Route: 065
     Dates: start: 2008, end: 2011
  7. TAXOL [Suspect]
     Indication: PRODUCT USED FOR UNKNOWN INDICATION
     Route: 065
     Dates: start: 2011
  8. TYKERB [Suspect]
     Indication: PRODUCT USED FOR UNKNOWN INDICATION
     Route: 065
     Dates: start: 201209, end: 201307
  9. NEXIUM [Concomitant]
     Route: 065
  10. TYLENOL [Concomitant]
     Indication: PAIN
     Dosage: AS REQUIRED
     Route: 065
  11. NYSTATIN SUSPENSION [Concomitant]
     Route: 065
  12. CELEBREX [Concomitant]
     Indication: ARTHRITIS
     Route: 065

REACTIONS (6)
  - Weight increased [Unknown]
  - Dry skin [Unknown]
  - Pyrexia [Unknown]
  - Dysgeusia [Unknown]
  - Gait disturbance [Unknown]
  - Disease progression [Unknown]
